FAERS Safety Report 9440511 (Version 1)
Quarter: 2013Q3

REPORT INFORMATION
  Report Type: Spontaneous
  Country: US (occurrence: US)
  Receive Date: 20130805
  Receipt Date: 20130805
  Transmission Date: 20140515
  Serious: Yes (Hospitalization, Congenital Anomaly, Other)
  Sender: FDA-Public Use
  Company Number: US-PFIZER INC-2013223937

PATIENT
  Sex: Male

DRUGS (7)
  1. SERTRALINE HCL [Suspect]
     Dosage: UNK
     Route: 064
     Dates: start: 2008, end: 2011
  2. ZOLOFT [Suspect]
     Dosage: UNK
     Route: 064
     Dates: start: 2009, end: 2010
  3. PRENATAL VITAMINS [Concomitant]
     Dosage: UNK
     Route: 064
  4. LABETALOL [Concomitant]
     Dosage: UNK
     Route: 064
  5. ONDANSETRON [Concomitant]
     Dosage: UNK
     Route: 064
  6. ACYCLOVIR [Concomitant]
     Dosage: UNK
     Route: 064
  7. FLUCONAZOLE [Concomitant]
     Dosage: UNK
     Route: 064

REACTIONS (6)
  - Maternal exposure during pregnancy [Unknown]
  - Heart disease congenital [Unknown]
  - Ventricular septal defect [Unknown]
  - Umbilical cord abnormality [Unknown]
  - Inguinal hernia [Unknown]
  - Developmental delay [Not Recovered/Not Resolved]
